FAERS Safety Report 16994001 (Version 1)
Quarter: 2019Q4

REPORT INFORMATION
  Report Type: Spontaneous
  Country: US (occurrence: US)
  Receive Date: 20190924
  Receipt Date: 20190924
  Transmission Date: 20200122
  Serious: No
  Sender: FDA-Public Use
  Company Number: None

PATIENT
  Age: 62 Year
  Sex: Male

DRUGS (4)
  1. ABIRATERONE 250MG TAB [Suspect]
     Active Substance: ABIRATERONE
     Indication: PROSTATE CANCER
     Route: 048
     Dates: start: 20190718
  2. GLIPIZIDE. [Concomitant]
     Active Substance: GLIPIZIDE
  3. PREDNISONE. [Concomitant]
     Active Substance: PREDNISONE
  4. ELIGARD [Concomitant]
     Active Substance: LEUPROLIDE ACETATE

REACTIONS (1)
  - Glossitis [None]

NARRATIVE: CASE EVENT DATE: 20190824
